FAERS Safety Report 22387242 (Version 1)
Quarter: 2023Q2

REPORT INFORMATION
  Report Type: Spontaneous
  Country: RU (occurrence: RU)
  Receive Date: 20230531
  Receipt Date: 20230531
  Transmission Date: 20230721
  Serious: Yes (Other)
  Sender: FDA-Public Use
  Company Number: RU-ROCHE-3354336

PATIENT
  Sex: Male

DRUGS (1)
  1. CAPECITABINE [Suspect]
     Active Substance: CAPECITABINE
     Indication: Tongue carcinoma stage IV
     Route: 048
     Dates: start: 202212

REACTIONS (4)
  - Condition aggravated [Unknown]
  - Weight decreased [Unknown]
  - Dysphagia [Unknown]
  - Product use in unapproved indication [Unknown]
